FAERS Safety Report 15320359 (Version 1)
Quarter: 2018Q3

REPORT INFORMATION
  Report Type: Spontaneous
  Country: US (occurrence: US)
  Receive Date: 20180821
  Receipt Date: 20180821
  Transmission Date: 20181010
  Serious: Yes (Disabling, Other)
  Sender: FDA-Public Use
  Company Number: None

PATIENT
  Age: 68 Year
  Sex: Female
  Weight: 81 kg

DRUGS (7)
  1. ATORVASTATIN [Concomitant]
     Active Substance: ATORVASTATIN
  2. IC LEVOTHYROXINE [Concomitant]
  3. IC VALSARTAN 160 MG TABLETS [Suspect]
     Active Substance: VALSARTAN
     Indication: HYPERTENSION
     Dosage: ?          QUANTITY:90 TABLET(S);?
     Route: 048
     Dates: start: 20180501, end: 20180810
  4. GLIPIZIDE. [Concomitant]
     Active Substance: GLIPIZIDE
  5. PIOGLITAZONE HCL [Concomitant]
     Active Substance: PIOGLITAZONE
  6. METFORMIN [Concomitant]
     Active Substance: METFORMIN HYDROCHLORIDE
  7. IC VALSARTIN [Concomitant]

REACTIONS (5)
  - Musculoskeletal discomfort [None]
  - Back pain [None]
  - Product physical issue [None]
  - Renal pain [None]
  - Blood urine present [None]

NARRATIVE: CASE EVENT DATE: 20180810
